FAERS Safety Report 4497289-X (Version None)
Quarter: 2004Q3

REPORT INFORMATION
  Report Type: 
  Country: None (occurrence: None)
  Receive Date: 20040927
  Receipt Date: 20040721
  Transmission Date: 20050211
  Serious: No
  Sender: FDA-Public Use
  Company Number: USA040773300

PATIENT
  Age: 13 Year
  Sex: Male
  Weight: 45 kg

DRUGS (2)
  1. STRATTERA [Suspect]
     Indication: ATTENTION DEFICIT/HYPERACTIVITY DISORDER
     Dosage: 40 MG/1 DAY
     Dates: start: 20030901, end: 20040601
  2. ZOLOFT [Concomitant]

REACTIONS (8)
  - ANXIETY [None]
  - CRYING [None]
  - DIZZINESS [None]
  - DIZZINESS POSTURAL [None]
  - FALL [None]
  - HYPERVENTILATION [None]
  - MOOD SWINGS [None]
  - NERVOUSNESS [None]
